FAERS Safety Report 9690201 (Version 1)
Quarter: 2013Q4

REPORT INFORMATION
  Report Type: Spontaneous
  Country: GB (occurrence: GB)
  Receive Date: 20131115
  Receipt Date: 20131115
  Transmission Date: 20140711
  Serious: Yes (Hospitalization)
  Sender: FDA-Public Use
  Company Number: PHFR2013GB006435

PATIENT
  Age: 74 Year
  Sex: Female

DRUGS (2)
  1. VALSARTAN [Suspect]
     Dosage: 80 MG, UNK
     Route: 048
  2. OMEPRAZOLE [Concomitant]
     Dosage: 20 MG, UNK
     Route: 048

REACTIONS (6)
  - Circumstance or information capable of leading to device use error [Unknown]
  - Faeces discoloured [Unknown]
  - Blood count abnormal [Unknown]
  - Accidental overdose [Unknown]
  - Hypotension [Unknown]
  - Dizziness [Unknown]
